FAERS Safety Report 7833621-4 (Version None)
Quarter: 2011Q4

REPORT INFORMATION
  Report Type: 
  Country: None (occurrence: None)
  Receive Date: 20111024
  Receipt Date: 20111010
  Transmission Date: 20120403
  Serious: Yes (Hospitalization)
  Sender: FDA-Public Use
  Company Number: US-SANOFI-AVENTIS-2011SA065907

PATIENT
  Age: 78 Year
  Sex: Male

DRUGS (10)
  1. ASPIRIN [Suspect]
     Indication: TRANSIENT ISCHAEMIC ATTACK
     Route: 065
  2. ENOXAPARIN SODIUM [Suspect]
     Indication: PROPHYLAXIS
     Route: 065
  3. METOPROLOL TARTRATE [Concomitant]
     Dosage: EXTENDED-RELEASE
     Route: 065
  4. FUROSEMIDE [Concomitant]
     Dosage: DOSE INCREASED.
     Route: 065
  5. NAPROXEN [Suspect]
     Route: 065
  6. LISINOPRIL [Concomitant]
     Route: 065
  7. WARFARIN SODIUM [Suspect]
     Dosage: 35MG/WEEK
     Route: 065
  8. DABIGATRAN ETEXILATE [Suspect]
     Indication: ATRIAL FIBRILLATION
     Route: 065
  9. WARFARIN SODIUM [Suspect]
     Dosage: DOSE REDUCED.
     Route: 065
  10. FUROSEMIDE [Concomitant]
     Route: 065

REACTIONS (10)
  - GASTROINTESTINAL HAEMORRHAGE [None]
  - ABDOMINAL DISCOMFORT [None]
  - TACHYPNOEA [None]
  - HYPOTENSION [None]
  - HAEMOGLOBIN DECREASED [None]
  - MELAENA [None]
  - PALLOR [None]
  - ABDOMINAL PAIN UPPER [None]
  - INTERNATIONAL NORMALISED RATIO INCREASED [None]
  - TACHYCARDIA [None]
